FAERS Safety Report 19884018 (Version 1)
Quarter: 2021Q3

REPORT INFORMATION
  Report Type: Spontaneous
  Country: US (occurrence: US)
  Receive Date: 20210923
  Receipt Date: 20210923
  Transmission Date: 20211014
  Serious: Yes (Hospitalization)
  Sender: FDA-Public Use
  Company Number: None

PATIENT
  Age: 75 Year
  Sex: Male
  Weight: 107 kg

DRUGS (2)
  1. CARBOPLATIN. [Suspect]
     Active Substance: CARBOPLATIN
     Dates: end: 20210709
  2. TAXOL [Suspect]
     Active Substance: PACLITAXEL
     Dates: end: 20210709

REACTIONS (4)
  - Peripheral sensory neuropathy [None]
  - Cervical radiculopathy [None]
  - Peripheral motor neuropathy [None]
  - Gait disturbance [None]

NARRATIVE: CASE EVENT DATE: 20210730
